FAERS Safety Report 5002596-8 (Version None)
Quarter: 2006Q2

REPORT INFORMATION
  Report Type: 
  Country: None (occurrence: None)
  Receive Date: 20060515
  Receipt Date: 20051018
  Transmission Date: 20061013
  Serious: Yes (Hospitalization, Other)
  Sender: FDA-Public Use
  Company Number: US-MERCK-0510USA07743

PATIENT
  Age: 69 Year
  Sex: Male
  Weight: 109 kg

DRUGS (6)
  1. VIOXX [Suspect]
     Indication: ARTHRITIS
     Route: 048
     Dates: start: 20030101, end: 20040101
  2. VIOXX [Suspect]
     Route: 048
     Dates: end: 20040101
  3. HYDRODIURIL [Concomitant]
     Route: 048
  4. HUMULIN N [Concomitant]
     Route: 065
  5. TAGAMET [Concomitant]
     Route: 065
  6. PLETAL [Concomitant]
     Route: 065

REACTIONS (7)
  - CAROTID ARTERY STENOSIS [None]
  - CEREBROVASCULAR ACCIDENT [None]
  - CHEST PAIN [None]
  - FLANK PAIN [None]
  - HYPERTENSION [None]
  - HYPOTONIA [None]
  - THROMBOSIS [None]
